FAERS Safety Report 7243539-6 (Version None)
Quarter: 2011Q1

REPORT INFORMATION
  Report Type: 
  Country: None (occurrence: None)
  Receive Date: 20110118
  Receipt Date: 20110105
  Transmission Date: 20110831
  Serious: Yes (Disabling)
  Sender: FDA-Public Use
  Company Number: US-JNJFOC-20101207634

PATIENT
  Age: 83 Year
  Sex: Female
  Weight: 79.3795 kg

DRUGS (3)
  1. ANZEMET [Concomitant]
  2. DECADRON [Concomitant]
  3. DACOGEN [Suspect]
     Indication: ACUTE MYELOID LEUKAEMIA
     Dosage: 39 MG, INTRAVENOUS
     Route: 042
     Dates: start: 20100920

REACTIONS (3)
  - BALANCE DISORDER [None]
  - NEUROPATHY PERIPHERAL [None]
  - ASTHENIA [None]
